FAERS Safety Report 5152509-3 (Version None)
Quarter: 2006Q4

REPORT INFORMATION
  Report Type: 
  Country: None (occurrence: None)
  Receive Date: 20061109
  Receipt Date: 20061101
  Transmission Date: 20070319
  Serious: Yes (Hospitalization)
  Sender: FDA-Public Use
  Company Number: E2090-00113-SPO-JP

PATIENT
  Age: 70 Year
  Sex: Female

DRUGS (8)
  1. ZONISAMIDE [Suspect]
     Indication: ENCEPHALITIS HERPES
     Dosage: 200 MG, ORAL
     Route: 048
     Dates: start: 20060901, end: 20061011
  2. LEVOFLOXACIN [Suspect]
     Indication: NASOPHARYNGITIS
     Dosage: 300 MG, ORAL
     Route: 048
     Dates: start: 20061005, end: 20061009
  3. PL [Suspect]
     Indication: NASOPHARYNGITIS
     Dosage: 3 GM, ORAL
     Route: 048
     Dates: start: 20061005, end: 20061009
  4. SIMVASTATIN [Concomitant]
  5. THEO-DUR [Concomitant]
  6. MUCODYNE (CARBOCISTEINE) [Concomitant]
  7. ASTOMIN (DIMEMORFAN PHOSPHATE) [Concomitant]
  8. METHYCOBAL (MECOBALAMIN) [Concomitant]

REACTIONS (4)
  - DRUG ERUPTION [None]
  - EOSINOPHIL PERCENTAGE INCREASED [None]
  - INTERSTITIAL LUNG DISEASE [None]
  - VIRAL INFECTION [None]
